FAERS Safety Report 24242893 (Version 1)
Quarter: 2024Q3

REPORT INFORMATION
  Report Type: Spontaneous
  Country: US (occurrence: US)
  Receive Date: 20240823
  Receipt Date: 20240823
  Transmission Date: 20241016
  Serious: Yes (Other)
  Sender: RANBAXY
  Company Number: US-SUN PHARMACEUTICAL INDUSTRIES LTD-2024R1-464413

PATIENT
  Age: 48 Year
  Sex: Female

DRUGS (2)
  1. GEMCITABINE [Suspect]
     Active Substance: GEMCITABINE
     Indication: Metastases to lung
     Dosage: 1000 MILLIGRAM/SQ. METER
     Route: 065
  2. CISPLATIN [Suspect]
     Active Substance: CISPLATIN
     Indication: Metastases to lung
     Dosage: 70 MILLIGRAM/SQ. METER
     Route: 065

REACTIONS (1)
  - Disease progression [Unknown]
